FAERS Safety Report 16847030 (Version 3)
Quarter: 2021Q2

REPORT INFORMATION
  Report Type: Spontaneous
  Country: US (occurrence: US)
  Receive Date: 20190924
  Receipt Date: 20210405
  Transmission Date: 20210716
  Serious: Yes (Other)
  Sender: FDA-Public Use
  Company Number: US-GILEAD-2019-0429491

PATIENT
  Age: 64 Year
  Sex: Female
  Weight: 49.89 kg

DRUGS (50)
  1. VIREAD [Suspect]
     Active Substance: TENOFOVIR DISOPROXIL FUMARATE
     Indication: HIV INFECTION
     Dosage: UNK
     Route: 048
     Dates: start: 20170601
  2. GENVOYA [Concomitant]
     Active Substance: COBICISTAT\ELVITEGRAVIR\EMTRICITABINE\TENOFOVIR ALAFENAMIDE FUMARATE
  3. METOCLOPRAMIDE. [Concomitant]
     Active Substance: METOCLOPRAMIDE
  4. FLEXERIL [CEFIXIME] [Concomitant]
     Active Substance: CEFIXIME
  5. ZOLPIDEM TARTRATE. [Concomitant]
     Active Substance: ZOLPIDEM TARTRATE
  6. ASPIRIN [ACETYLSALICYLIC ACID] [Concomitant]
     Active Substance: ASPIRIN
  7. TRUVADA [Suspect]
     Active Substance: EMTRICITABINE\TENOFOVIR DISOPROXIL FUMARATE
     Indication: HIV INFECTION
     Dosage: UNK
     Route: 048
     Dates: start: 2004, end: 2005
  8. EPIVIR [Concomitant]
     Active Substance: LAMIVUDINE
  9. TRIUMEQ [Concomitant]
     Active Substance: ABACAVIR SULFATE\DOLUTEGRAVIR SODIUM\LAMIVUDINE
  10. ZIAGEN [Concomitant]
     Active Substance: ABACAVIR SULFATE
  11. MEROPENEM. [Concomitant]
     Active Substance: MEROPENEM
  12. ROCEPHINE [Concomitant]
     Active Substance: CEFTRIAXONE SODIUM
  13. LOVAZA [Concomitant]
     Active Substance: OMEGA-3-ACID ETHYL ESTERS
  14. CRESTOR [Concomitant]
     Active Substance: ROSUVASTATIN CALCIUM
  15. FUROSEMIDE. [Concomitant]
     Active Substance: FUROSEMIDE
  16. VIVELLE?DOT [Concomitant]
     Active Substance: ESTRADIOL
  17. ATRIPLA [Suspect]
     Active Substance: EFAVIRENZ\EMTRICITABINE\TENOFOVIR DISOPROXIL FUMARATE
     Indication: HIV INFECTION
     Dosage: UNK
     Route: 048
     Dates: start: 20121011, end: 201711
  18. SUSTIVA [Concomitant]
     Active Substance: EFAVIRENZ
  19. MAGNESIUM SULPHATE [MAGNESIUM SULFATE] [Concomitant]
     Active Substance: MAGNESIUM SULFATE
  20. CALCIUM GLUCONATE. [Concomitant]
     Active Substance: CALCIUM GLUCONATE
  21. CEFTRIAXONE. [Concomitant]
     Active Substance: CEFTRIAXONE
  22. AMBIEN [Concomitant]
     Active Substance: ZOLPIDEM TARTRATE
  23. LEVOFLOXACIN. [Concomitant]
     Active Substance: LEVOFLOXACIN
  24. TRAZODONE [Concomitant]
     Active Substance: TRAZODONE HYDROCHLORIDE
  25. SACCHAROMYCES BOULARDII [Concomitant]
     Active Substance: SACCHAROMYCES CEREVISIAE
  26. TRUVADA [Suspect]
     Active Substance: EMTRICITABINE\TENOFOVIR DISOPROXIL FUMARATE
     Dosage: UNK
     Route: 048
     Dates: start: 2017, end: 2017
  27. PANTOPRAZOLE [Concomitant]
     Active Substance: PANTOPRAZOLE
  28. CEFEPIME [Concomitant]
     Active Substance: CEFEPIME HYDROCHLORIDE
  29. ZOSYN [Concomitant]
     Active Substance: PIPERACILLIN SODIUM\TAZOBACTAM SODIUM
  30. PEPCID [Concomitant]
     Active Substance: FAMOTIDINE
  31. OMEGA?3?ACID ETHYL ESTER [Concomitant]
     Active Substance: OMEGA-3-ACID ETHYL ESTERS
  32. TIVICAY [Concomitant]
     Active Substance: DOLUTEGRAVIR SODIUM
  33. BUPROPION. [Concomitant]
     Active Substance: BUPROPION
  34. IPRATROPIUM [Concomitant]
     Active Substance: IPRATROPIUM
  35. ALPRAZOLAM. [Concomitant]
     Active Substance: ALPRAZOLAM
  36. CELEXA [CELECOXIB] [Concomitant]
     Active Substance: CELECOXIB
  37. DECADRON [Concomitant]
     Active Substance: DEXAMETHASONE
  38. ATORVASTATIN [Concomitant]
     Active Substance: ATORVASTATIN
  39. INSULIN [Concomitant]
     Active Substance: INSULIN NOS
  40. ESTRADIOL. [Concomitant]
     Active Substance: ESTRADIOL
  41. ENOXAPARIN [Concomitant]
     Active Substance: ENOXAPARIN
  42. DEXAMETHASONE. [Concomitant]
     Active Substance: DEXAMETHASONE
  43. CEFADROXIL. [Concomitant]
     Active Substance: CEFADROXIL
  44. DEXAMETHASONE. [Concomitant]
     Active Substance: DEXAMETHASONE
  45. ACETAMINOPHEN. [Concomitant]
     Active Substance: ACETAMINOPHEN
  46. POTASSIUM BICARBONATE. [Concomitant]
     Active Substance: POTASSIUM BICARBONATE
  47. ARIPIPRAZOLE. [Concomitant]
     Active Substance: ARIPIPRAZOLE
  48. EPINEPHRINE. [Concomitant]
     Active Substance: EPINEPHRINE
  49. VANCOMYCIN [Concomitant]
     Active Substance: VANCOMYCIN
  50. ROSUVASTATIN. [Concomitant]
     Active Substance: ROSUVASTATIN

REACTIONS (13)
  - Osteoporosis [Not Recovered/Not Resolved]
  - Osteopenia [Not Recovered/Not Resolved]
  - Quality of life decreased [Unknown]
  - Emotional distress [Not Recovered/Not Resolved]
  - Fatigue [Not Recovered/Not Resolved]
  - Anxiety [Not Recovered/Not Resolved]
  - Loss of personal independence in daily activities [Unknown]
  - Decreased activity [Unknown]
  - Mobility decreased [Not Recovered/Not Resolved]
  - Anhedonia [Not Recovered/Not Resolved]
  - Pain [Not Recovered/Not Resolved]
  - End stage renal disease [Not Recovered/Not Resolved]
  - Acute kidney injury [Not Recovered/Not Resolved]

NARRATIVE: CASE EVENT DATE: 20150409
